FAERS Safety Report 15850539 (Version 1)
Quarter: 2019Q1

REPORT INFORMATION
  Report Type: Spontaneous
  Country: US (occurrence: US)
  Receive Date: 20190121
  Receipt Date: 20190121
  Transmission Date: 20190417
  Serious: No
  Sender: FDA-Public Use
  Company Number: US-PFIZER INC-2019023472

PATIENT
  Age: 42 Year
  Sex: Female
  Weight: 124.7 kg

DRUGS (8)
  1. MOVANTIK [Concomitant]
     Active Substance: NALOXEGOL OXALATE
     Indication: CONSTIPATION
     Dosage: 12.5 MG, AS NEEDED
     Route: 048
     Dates: start: 2018
  2. BUTALBITAL, ACETAMINOPHEN, AND CAFFEINE [Concomitant]
     Active Substance: ACETAMINOPHEN\BUTALBITAL\CAFFEINE
     Indication: MIGRAINE
     Dosage: 1 DF, AS NEEDED [BUTALBITAL: 50 MG, CAFFEINE: 40, PARACETAMOL: 325 MG]
     Route: 048
     Dates: start: 201810
  3. LYRICA [Suspect]
     Active Substance: PREGABALIN
     Indication: TUMOUR PAIN
  4. LYRICA [Suspect]
     Active Substance: PREGABALIN
     Indication: TUMOUR EXCISION
     Dosage: 150 MG THREE TIMES DAILY
     Route: 048
     Dates: start: 2018
  5. LYRICA [Suspect]
     Active Substance: PREGABALIN
     Indication: SPINAL CORD INJURY
  6. VITAMIN D [Concomitant]
     Active Substance: CHOLECALCIFEROL
     Indication: VITAMIN D DEFICIENCY
     Dosage: 50000 IU, WEEKLY
     Route: 048
     Dates: start: 2018
  7. SUMATRIPTAN. [Concomitant]
     Active Substance: SUMATRIPTAN
     Indication: MIGRAINE
     Dosage: 100 MG, AS NEEDED
     Route: 048
     Dates: start: 2017
  8. FERROUS SULFATE. [Concomitant]
     Active Substance: FERROUS SULFATE
     Indication: ANAEMIA
     Dosage: 325 MG THREE TIMES DAILY
     Route: 048
     Dates: start: 201810

REACTIONS (5)
  - Hyperhidrosis [Not Recovered/Not Resolved]
  - Swelling [Recovering/Resolving]
  - Burning sensation [Not Recovered/Not Resolved]
  - Nausea [Not Recovered/Not Resolved]
  - Pain [Recovering/Resolving]

NARRATIVE: CASE EVENT DATE: 2018
